FAERS Safety Report 6768750-X (Version None)
Quarter: 2010Q2

REPORT INFORMATION
  Report Type: 
  Country: None (occurrence: None)
  Receive Date: 20100611
  Receipt Date: 20100604
  Transmission Date: 20101027
  Serious: Yes (Other)
  Sender: FDA-Public Use
  Company Number: TPA2010A01017

PATIENT
  Sex: Female

DRUGS (5)
  1. PIOGLITAZONE [Suspect]
     Indication: TYPE 2 DIABETES MELLITUS
     Dosage: 30 MG, ORAL
     Route: 048
  2. GSK BLINDED STUDY MEDICATION [Suspect]
     Indication: TYPE 2 DIABETES MELLITUS
     Dates: start: 20091112
  3. METFORMIN HYDROCHLORIDE [Suspect]
     Indication: TYPE 2 DIABETES MELLITUS
     Dosage: ORAL
     Route: 048
  4. ENALAPRIL MALEATE [Concomitant]
  5. AMLODIPINE [Concomitant]

REACTIONS (3)
  - ANAEMIA [None]
  - DIARRHOEA INFECTIOUS [None]
  - RENAL IMPAIRMENT [None]
